FAERS Safety Report 8239041-5 (Version None)
Quarter: 2012Q1

REPORT INFORMATION
  Report Type: 
  Country: None (occurrence: None)
  Receive Date: 20120327
  Receipt Date: 20120326
  Transmission Date: 20120608
  Serious: Yes (Other)
  Sender: FDA-Public Use
  Company Number: ES-MERCK-1201ESP00034

PATIENT
  Age: 60 Year
  Sex: Male

DRUGS (2)
  1. ZETIA [Suspect]
     Indication: DYSLIPIDAEMIA
     Route: 048
     Dates: start: 20120101, end: 20120101
  2. FLUVASTATIN SODIUM [Concomitant]
     Indication: DYSLIPIDAEMIA
     Route: 048
     Dates: end: 20120101

REACTIONS (4)
  - SKIN EXFOLIATION [None]
  - ASTHENIA [None]
  - PAIN IN EXTREMITY [None]
  - FATIGUE [None]
